FAERS Safety Report 4313659-4 (Version None)
Quarter: 2004Q1

REPORT INFORMATION
  Report Type: 
  Country: None (occurrence: None)
  Receive Date: 20040308
  Receipt Date: 20030620
  Transmission Date: 20041129
  Serious: Yes (Death, Other)
  Sender: FDA-Public Use
  Company Number: PHNU2003DE02397

PATIENT
  Sex: Female

DRUGS (3)
  1. CHEMOTHERAPEUTICS,OTHER [Concomitant]
     Indication: HEPATOMEGALY
  2. SANDOSTATIN LAR [Suspect]
     Indication: CARCINOID TUMOUR
     Dosage: 30 MG, QMO
     Route: 030
     Dates: start: 20030101, end: 20030101
  3. SANDOSTATIN LAR [Suspect]
     Dosage: 20MG
     Route: 030
     Dates: start: 20030101, end: 20030101

REACTIONS (11)
  - APPLICATION SITE REACTION [None]
  - ARTHRALGIA [None]
  - BACK PAIN [None]
  - DIFFICULTY IN WALKING [None]
  - DISEASE PROGRESSION [None]
  - GASTROINTESTINAL DISORDER [None]
  - HEPATOMEGALY [None]
  - METASTASES TO SPINE [None]
  - MYALGIA [None]
  - PAIN IN EXTREMITY [None]
  - STARVATION [None]
